FAERS Safety Report 4532070-4 (Version None)
Quarter: 2004Q4

REPORT INFORMATION
  Report Type: 
  Country: None (occurrence: None)
  Receive Date: 20041217
  Receipt Date: 20041208
  Transmission Date: 20050328
  Serious: No
  Sender: FDA-Public Use
  Company Number: 2004UW18156

PATIENT
  Age: 46 Year
  Sex: Female
  Weight: 115.4404 kg

DRUGS (9)
  1. SEROQUEL [Suspect]
     Indication: SUICIDAL IDEATION
     Dates: start: 20040614, end: 20040820
  2. LITHIUM [Concomitant]
  3. TEGRETOL [Concomitant]
  4. PROVIGIL [Concomitant]
  5. NEURONTIN [Concomitant]
  6. NEXIUM [Concomitant]
  7. LORAZEPAM [Concomitant]
  8. LORTAB [Concomitant]
  9. AMBIEN [Concomitant]

REACTIONS (9)
  - DROOLING [None]
  - MARKEDLY REDUCED DIETARY INTAKE [None]
  - MOVEMENT DISORDER [None]
  - NASOPHARYNGITIS [None]
  - SPEECH DISORDER [None]
  - SWOLLEN TONGUE [None]
  - TONGUE DISORDER [None]
  - TONGUE ULCERATION [None]
  - WEIGHT DECREASED [None]
